FAERS Safety Report 9294014 (Version 1)
Quarter: 2012Q4

REPORT INFORMATION
  Report Type: Spontaneous
  Country: US (occurrence: None)
  Receive Date: 20121226
  Receipt Date: 20121226
  Transmission Date: 20130627
  Serious: Yes (Death)
  Sender: FDA-Public Use
  Company Number: ADR-2012-02284

PATIENT
  Age: 78 Year
  Sex: Male

DRUGS (1)
  1. BACLOFEN INTRATHECAL [Suspect]
     Indication: SPASTICITY

REACTIONS (5)
  - Respiratory disorder [None]
  - Lung infection [None]
  - Overdose [None]
  - Respiratory arrest [None]
  - Coma [None]
